FAERS Safety Report 18581955 (Version 3)
Quarter: 2021Q1

REPORT INFORMATION
  Report Type: Spontaneous
  Country: US (occurrence: US)
  Receive Date: 20201204
  Receipt Date: 20210211
  Transmission Date: 20210419
  Serious: Yes (Hospitalization, Other)
  Sender: FDA-Public Use
  Company Number: US-009507513-2012USA000447

PATIENT
  Age: 63 Year
  Sex: Male

DRUGS (1)
  1. KEYTRUDA [Suspect]
     Active Substance: PEMBROLIZUMAB
     Indication: LUNG NEOPLASM MALIGNANT
     Dosage: 200 (UNITS NOR PROVIDED), EVERY 3 WEEKS
     Route: 042
     Dates: start: 201910, end: 20201028

REACTIONS (16)
  - Stent placement [Unknown]
  - Arthritis [Unknown]
  - Surgery [Unknown]
  - Tooth disorder [Not Recovered/Not Resolved]
  - SARS-CoV-2 test positive [Unknown]
  - Nausea [Unknown]
  - Foot amputation [Unknown]
  - Malaise [Unknown]
  - Ill-defined disorder [Unknown]
  - Oral disorder [Not Recovered/Not Resolved]
  - Arterial stent insertion [Unknown]
  - Tooth loss [Not Recovered/Not Resolved]
  - Somnolence [Unknown]
  - Back pain [Unknown]
  - Spinal operation [Unknown]
  - Fatigue [Unknown]

NARRATIVE: CASE EVENT DATE: 202008
